FAERS Safety Report 11215877 (Version 1)
Quarter: 2015Q2

REPORT INFORMATION
  Report Type: Spontaneous
  Country: US (occurrence: US)
  Receive Date: 20150624
  Receipt Date: 20150624
  Transmission Date: 20150821
  Serious: Yes (Other)
  Sender: FDA-Public Use
  Company Number: US-PFIZER INC-2015207046

PATIENT
  Sex: Male

DRUGS (1)
  1. LYRICA [Suspect]
     Active Substance: PREGABALIN
     Dosage: 300 MG, 1X/DAY

REACTIONS (6)
  - Limb discomfort [Unknown]
  - Lower extremity mass [Unknown]
  - Type 2 diabetes mellitus [Unknown]
  - Pain [Unknown]
  - Somnolence [Unknown]
  - Rash [Unknown]
